FAERS Safety Report 9438880 (Version 7)
Quarter: 2013Q4

REPORT INFORMATION
  Report Type: Report from Study
  Country: CN (occurrence: CN)
  Receive Date: 20130802
  Receipt Date: 20131122
  Transmission Date: 20140711
  Serious: No
  Sender: FDA-Public Use
  Company Number: CN-UCBSA-092808

PATIENT
  Age: 29 Year
  Sex: Male
  Weight: 47.5 kg

DRUGS (15)
  1. LACOSAMIDE [Suspect]
     Indication: PARTIAL SEIZURES
     Route: 048
     Dates: start: 20130607, end: 20130718
  2. CARBAMAZEPINE [Concomitant]
     Indication: EPILEPSY
     Route: 048
     Dates: start: 199812
  3. PHENOBARBITAL [Concomitant]
     Indication: EPILEPSY
     Route: 048
     Dates: start: 201301
  4. BELLADONNA/SULFAMETHOXAZOLE AND TRIMETHOPRIM [Concomitant]
     Indication: DIARRHOEA
     Route: 048
     Dates: start: 20130621, end: 20130621
  5. BELLADONNA/SULFAMETHOXAZOLE AND TRIMETHOPRIM [Concomitant]
     Indication: DIARRHOEA
     Route: 048
     Dates: start: 20130621, end: 20130621
  6. CYTOSINE ARABINOSIDE [Concomitant]
     Indication: PYREXIA
     Dates: start: 20130714, end: 20130715
  7. FOSFOMYCIN [Concomitant]
     Indication: PYREXIA
     Dates: start: 20130714, end: 20130715
  8. LEVOFLOXACIN [Concomitant]
     Indication: PYREXIA
     Dates: start: 20130714, end: 20130714
  9. DEXAMETHASONE [Concomitant]
     Indication: PYREXIA
     Route: 042
     Dates: start: 20130714, end: 20130714
  10. VITAMIN C [Concomitant]
     Indication: PYREXIA
     Dates: start: 20130715, end: 20130715
  11. VITAMIN B6 [Concomitant]
     Indication: PYREXIA
     Dates: start: 20130715, end: 20130715
  12. CITICOLINE [Concomitant]
     Indication: PYREXIA
     Dates: start: 20130715, end: 20130715
  13. MANNITOL [Concomitant]
     Indication: PYREXIA
     Dates: start: 20130715, end: 20130715
  14. IBUPROFEN [Concomitant]
     Indication: PYREXIA
     Route: 048
     Dates: start: 20130715, end: 20130719
  15. MOTILIUM [Concomitant]
     Indication: ABDOMINAL PAIN UPPER
     Dosage: 1 TAB
     Route: 048
     Dates: start: 20130827, end: 20130827

REACTIONS (3)
  - Pyrexia [Recovering/Resolving]
  - Leukopenia [Recovering/Resolving]
  - Liver disorder [Recovered/Resolved]
